FAERS Safety Report 7598421-1 (Version None)
Quarter: 2011Q3

REPORT INFORMATION
  Report Type: 
  Country: None (occurrence: None)
  Receive Date: 20110708
  Receipt Date: 20110628
  Transmission Date: 20111222
  Serious: Yes (Other)
  Sender: FDA-Public Use
  Company Number: JP-ASTRAZENECA-2011SE39883

PATIENT
  Age: 58 Year
  Sex: Male

DRUGS (2)
  1. SEROQUEL [Suspect]
     Indication: SCHIZOPHRENIA
     Route: 048
     Dates: start: 20110501
  2. ROHIPNOL [Suspect]
     Route: 048
     Dates: start: 20110601, end: 20110601

REACTIONS (1)
  - FALL [None]
